FAERS Safety Report 21370675 (Version 2)
Quarter: 2022Q4

REPORT INFORMATION
  Report Type: Spontaneous
  Country: US (occurrence: US)
  Receive Date: 20220923
  Receipt Date: 20221027
  Transmission Date: 20230113
  Serious: No
  Sender: FDA-Public Use
  Company Number: US-BRISTOL-MYERS SQUIBB COMPANY-2022-111062

PATIENT
  Age: 70 Year
  Sex: Female
  Weight: 137.44 kg

DRUGS (1)
  1. LENALIDOMIDE [Suspect]
     Active Substance: LENALIDOMIDE
     Indication: Plasma cell myeloma
     Dosage: FREQ : DAILY ON DAYS 1-21 EVERY 28 DAYS
     Route: 048
     Dates: start: 20220823

REACTIONS (5)
  - Product dose omission issue [Unknown]
  - Blood potassium decreased [Recovering/Resolving]
  - Vitamin D decreased [Recovering/Resolving]
  - Hypotension [Recovering/Resolving]
  - Vomiting [Recovering/Resolving]

NARRATIVE: CASE EVENT DATE: 20220919
